FAERS Safety Report 14663388 (Version 8)
Quarter: 2021Q1

REPORT INFORMATION
  Report Type: Spontaneous
  Country: US (occurrence: US)
  Receive Date: 20180321
  Receipt Date: 20210129
  Transmission Date: 20210419
  Serious: No
  Sender: FDA-Public Use
  Company Number: US-PFIZER INC-2018113828

PATIENT
  Age: 89 Year
  Sex: Female
  Weight: 51 kg

DRUGS (2)
  1. CELEBREX [Suspect]
     Active Substance: CELECOXIB
     Indication: ARTHRITIS
     Dosage: 200 MG, UNK (ONCE OR TWICE DAILY)
     Route: 048
     Dates: start: 201803, end: 201804
  2. CELEBREX [Suspect]
     Active Substance: CELECOXIB
     Indication: PAIN
     Dosage: 200 MG, 1X/DAY (ONCE DAILY WHEN NEEDED)

REACTIONS (6)
  - Gait disturbance [Not Recovered/Not Resolved]
  - Pain in extremity [Not Recovered/Not Resolved]
  - Malaise [Unknown]
  - Musculoskeletal pain [Not Recovered/Not Resolved]
  - Hypertension [Unknown]
  - Hypoacusis [Recovered/Resolved]

NARRATIVE: CASE EVENT DATE: 201703
